FAERS Safety Report 6463507-1 (Version None)
Quarter: 2009Q4

REPORT INFORMATION
  Report Type: 
  Country: None (occurrence: None)
  Receive Date: 20091201
  Receipt Date: 20091123
  Transmission Date: 20100525
  Serious: Yes (Hospitalization)
  Sender: FDA-Public Use
  Company Number: US-BIOGENIDEC-2009BI031174

PATIENT
  Age: 78 Year
  Sex: Female
  Weight: 79 kg

DRUGS (3)
  1. AVONEX [Suspect]
     Indication: MULTIPLE SCLEROSIS
     Route: 030
     Dates: start: 20071001
  2. AVONEX [Suspect]
     Route: 030
     Dates: start: 20080117
  3. AVONEX [Suspect]
     Route: 030
     Dates: start: 20090128

REACTIONS (4)
  - APPENDICITIS [None]
  - GAIT DISTURBANCE [None]
  - GALLBLADDER DISORDER [None]
  - PAIN [None]
